FAERS Safety Report 6026676-3 (Version None)
Quarter: 2008Q4

REPORT INFORMATION
  Report Type: 
  Country: None (occurrence: None)
  Receive Date: 20081231
  Receipt Date: 20081216
  Transmission Date: 20090506
  Serious: Yes (Death, Hospitalization)
  Sender: FDA-Public Use
  Company Number: 2008MB000115

PATIENT
  Sex: Female

DRUGS (6)
  1. CEPHALEXIN [Suspect]
     Dosage: TRPL
     Route: 064
  2. PRENATAL VITAMINS /01549301/ (PRENATAL VITAMINS /01549301/) [Suspect]
     Dosage: TRPL
     Route: 064
  3. URSODIOL [Suspect]
     Dosage: TRPL
     Route: 064
  4. INDOMETHACIN [Suspect]
     Dosage: TRPL
  5. CEFAZOLIN [Suspect]
     Dosage: TRPL; TRPL
     Route: 064
  6. AMPICILLIN [Suspect]
     Dosage: TRPL
     Route: 064

REACTIONS (7)
  - CARDIAC ARREST NEONATAL [None]
  - CLOSTRIDIAL INFECTION [None]
  - HYDROPS FOETALIS [None]
  - MATERNAL DRUGS AFFECTING FOETUS [None]
  - NEONATAL DISORDER [None]
  - PLEURAL EFFUSION [None]
  - PREMATURE BABY [None]
